FAERS Safety Report 18105242 (Version 2)
Quarter: 2020Q3

REPORT INFORMATION
  Report Type: Spontaneous
  Country: US (occurrence: US)
  Receive Date: 20200803
  Receipt Date: 20200814
  Transmission Date: 20201103
  Serious: Yes (Hospitalization, Other)
  Sender: FDA-Public Use
  Company Number: US-ENDO PHARMACEUTICALS INC-2020-005175

PATIENT
  Sex: Male
  Weight: 133.79 kg

DRUGS (5)
  1. TESTOPEL [Suspect]
     Active Substance: TESTOSTERONE
     Indication: BLOOD TESTOSTERONE DECREASED
     Dosage: UNKNOWN, UNKNOWN; 10 PELLETS
     Route: 065
  2. PROZAC [Concomitant]
     Active Substance: FLUOXETINE HYDROCHLORIDE
     Indication: PRODUCT USED FOR UNKNOWN INDICATION
     Dosage: UNK UNKNOWN, UNKNOWN
     Route: 065
  3. TESTOPEL [Suspect]
     Active Substance: TESTOSTERONE
     Dosage: UNKNOWN, UNKNOWN; 12 PELLETS
     Route: 065
     Dates: start: 2019, end: 202001
  4. TESTOPEL [Suspect]
     Active Substance: TESTOSTERONE
     Indication: BLOOD TESTOSTERONE DECREASED
     Dosage: UNKNOWN, UNKNOWN; 10 PELLETS
     Route: 065
  5. TESTOPEL [Suspect]
     Active Substance: TESTOSTERONE
     Dosage: UNKNOWN, UNKNOWN; 12 PELLETS
     Route: 065
     Dates: start: 2019, end: 202001

REACTIONS (8)
  - Ischaemic stroke [Unknown]
  - Brain injury [Unknown]
  - Amnesia [Unknown]
  - Drug ineffective [Unknown]
  - Product dose omission in error [Unknown]
  - Myocardial infarction [Unknown]
  - Coronary artery occlusion [Unknown]
  - Prescribed overdose [Recovered/Resolved]

NARRATIVE: CASE EVENT DATE: 2019
